FAERS Safety Report 8516363-1 (Version None)
Quarter: 2012Q3

REPORT INFORMATION
  Report Type: 
  Country: None (occurrence: None)
  Receive Date: 20120718
  Receipt Date: 20120712
  Transmission Date: 20120928
  Serious: Yes (Other)
  Sender: FDA-Public Use
  Company Number: US-BIOGENIDEC-2012BI003299

PATIENT
  Age: 54 Year
  Sex: Female

DRUGS (8)
  1. TYSABRI [Suspect]
     Indication: MULTIPLE SCLEROSIS
     Route: 042
     Dates: start: 20090729, end: 20100601
  2. FENTANYL [Concomitant]
  3. PERCOCET [Concomitant]
  4. REQUIP [Concomitant]
  5. SOMA [Concomitant]
  6. PREVACID [Concomitant]
  7. PREMPRO [Concomitant]
  8. KLONOPIN [Concomitant]

REACTIONS (1)
  - LUNG ADENOCARCINOMA METASTATIC [None]
